FAERS Safety Report 4307492-7 (Version None)
Quarter: 2004Q1

REPORT INFORMATION
  Report Type: 
  Country: None (occurrence: None)
  Receive Date: 20040226
  Receipt Date: 20030618
  Transmission Date: 20041129
  Serious: Yes (Death, Congenital Anomaly)
  Sender: FDA-Public Use
  Company Number: 2003IC000217

PATIENT
  Sex: Male

DRUGS (3)
  1. LIBRAX [Suspect]
     Dosage: TRANSPLACENTAL
     Route: 064
  2. LARIAM [Suspect]
     Dosage: TRANSPLANCENTAL
     Route: 064
     Dates: start: 20030102, end: 20030210
  3. STAMARIL AMARIL VACCIN (GENERIC UNKNOWN) [Suspect]
     Dosage: 1 FD; TRANSPLACENTAL
     Route: 064
     Dates: start: 20021227, end: 20021227

REACTIONS (10)
  - ABORTION INDUCED [None]
  - COMPLICATIONS OF MATERNAL EXPOSURE TO THERAPEUTIC DRUGS [None]
  - FOETAL DISORDER [None]
  - FOETAL MALFORMATION [None]
  - FOETAL MALPOSITION [None]
  - HAEMORRHAGE [None]
  - HYDROCEPHALUS [None]
  - INTRA-UTERINE DEATH [None]
  - MATERNAL DRUGS AFFECTING FOETUS [None]
  - PREGNANCY [None]
